FAERS Safety Report 4950439-0 (Version None)
Quarter: 2006Q1

REPORT INFORMATION
  Report Type: 
  Country: None (occurrence: None)
  Receive Date: 20060127
  Receipt Date: 20050509
  Transmission Date: 20060701
  Serious: Yes (Death)
  Sender: FDA-Public Use
  Company Number: 05-05-0816

PATIENT
  Age: 77 Year
  Sex: Male

DRUGS (7)
  1. CLOZAPINE [Suspect]
     Indication: PARKINSON'S DISEASE
     Dosage: 25-50MG QD, ORAL
     Route: 048
     Dates: start: 19990601, end: 20050412
  2. TRAZODONE HCL [Concomitant]
  3. SINEMET [Concomitant]
  4. ENTACAPONE [Concomitant]
  5. RANITIDINE [Concomitant]
  6. HYOSCINE HBR HYT [Concomitant]
  7. NEUTRA-PHOS [Concomitant]

REACTIONS (1)
  - UNEVALUABLE EVENT [None]
